FAERS Safety Report 9985565 (Version 2)
Quarter: 2014Q1

REPORT INFORMATION
  Report Type: Spontaneous
  Country: US (occurrence: US)
  Receive Date: 20140307
  Receipt Date: 20140307
  Transmission Date: 20141002
  Serious: No
  Sender: FDA-Public Use
  Company Number: US-GILEAD-2012-0058752

PATIENT
  Sex: Male
  Weight: 97.95 kg

DRUGS (12)
  1. TRUVADA [Suspect]
     Indication: HIV INFECTION
     Dosage: 1 DF, QD
     Dates: start: 20051216, end: 20110616
  2. REYATAZ [Concomitant]
     Indication: HIV INFECTION
  3. NORVIR [Concomitant]
     Indication: HIV INFECTION
  4. CREATININE [Concomitant]
  5. LEXAPRO [Concomitant]
     Dosage: UNK
     Dates: start: 20050316
  6. AXERT [Concomitant]
     Dosage: UNK
     Dates: start: 20080418
  7. VIAGRA [Concomitant]
     Dosage: UNK
     Dates: start: 20080418
  8. XANAX [Concomitant]
     Dosage: UNK
     Dates: start: 20080718
  9. TESTIM [Concomitant]
     Dosage: UNK
     Dates: start: 20061206
  10. BENICAR [Concomitant]
     Dosage: UNK
     Dates: start: 20060217
  11. EVISTA [Concomitant]
     Dosage: UNK
     Dates: start: 20110520
  12. LOVAZA [Concomitant]
     Dosage: UNK

REACTIONS (1)
  - Renal impairment [Unknown]
